FAERS Safety Report 19174784 (Version 2)
Quarter: 2021Q2

REPORT INFORMATION
  Report Type: Spontaneous
  Country: DE (occurrence: DE)
  Receive Date: 20210423
  Receipt Date: 20210429
  Transmission Date: 20210717
  Serious: Yes (Death, Other)
  Sender: FDA-Public Use
  Company Number: DE-ASTRAZENECA-2021A338875

PATIENT
  Age: 35 Year
  Sex: Female
  Weight: 80 kg

DRUGS (9)
  1. PROMETHAZINE [Interacting]
     Active Substance: PROMETHAZINE HYDROCHLORIDE
     Indication: ACUTE PSYCHOSIS
     Dosage: 25 MG 1 ST MAX 44X/24 H 4 H
     Route: 048
     Dates: start: 20200731
  2. BIPRETERAX N [Interacting]
     Active Substance: INDAPAMIDE\PERINDOPRIL ARGININE
     Indication: ESSENTIAL HYPERTENSION
     Dosage: 5 MG / 1,25 MG 1?0?0?0
     Route: 048
     Dates: start: 20140913
  3. SOLIAN [Interacting]
     Active Substance: AMISULPRIDE
     Indication: SLEEP DISORDER
     Dosage: 100 MG 1?0?1
     Route: 048
     Dates: start: 20200731
  4. QUETIAPIN [Suspect]
     Active Substance: QUETIAPINE
     Indication: ACUTE PSYCHOSIS
     Dosage: 300 MG 0?0?0?1
     Route: 048
     Dates: start: 2021
  5. UNSPECIFIED METOPROLOL SUCCINATE [Interacting]
     Active Substance: METOPROLOL SUCCINATE
     Indication: HYPERTENSIVE CRISIS
     Dosage: 23,5 MG 1?0?0?0
     Route: 048
     Dates: start: 20140913
  6. SOLIAN [Interacting]
     Active Substance: AMISULPRIDE
     Indication: RESTLESSNESS
     Dosage: 100 MG 1?0?1
     Route: 048
     Dates: start: 20200731
  7. BIPRETERAX N [Interacting]
     Active Substance: INDAPAMIDE\PERINDOPRIL ARGININE
     Indication: HYPERTENSIVE CRISIS
     Dosage: 5 MG / 1,25 MG 1?0?0?0
     Route: 048
     Dates: start: 20140913
  8. SOLIAN [Interacting]
     Active Substance: AMISULPRIDE
     Indication: ANXIETY
     Dosage: 100 MG 1?0?1
     Route: 048
     Dates: start: 20200731
  9. UNSPECIFIED METOPROLOL SUCCINATE [Interacting]
     Active Substance: METOPROLOL SUCCINATE
     Indication: ESSENTIAL HYPERTENSION
     Dosage: 23,5 MG 1?0?0?0
     Route: 048
     Dates: start: 20140913

REACTIONS (3)
  - Death [Fatal]
  - Multiple organ dysfunction syndrome [Fatal]
  - Drug interaction [Unknown]

NARRATIVE: CASE EVENT DATE: 2021
